FAERS Safety Report 4689200-3 (Version None)
Quarter: 2005Q2

REPORT INFORMATION
  Report Type: 
  Country: None (occurrence: None)
  Receive Date: 20050613
  Receipt Date: 20040401
  Transmission Date: 20051028
  Serious: Yes (Hospitalization)
  Sender: FDA-Public Use
  Company Number: US-ABBOTT-04P-163-0255683-00

PATIENT
  Sex: Male
  Weight: 74.002 kg

DRUGS (11)
  1. HUMIRA [Suspect]
     Indication: RHEUMATOID ARTHRITIS
     Route: 058
     Dates: start: 20030201, end: 20041201
  2. METFORMIN HCL [Concomitant]
     Indication: DIABETES MELLITUS
     Route: 048
  3. NATEGLINIDE [Concomitant]
     Indication: DIABETES MELLITUS
     Route: 048
  4. INSULIN GLARGINE [Concomitant]
     Indication: DIABETES MELLITUS
     Route: 058
  5. MODERIC [Concomitant]
     Indication: HYPERTENSION
     Route: 048
  6. PREDNISONE TAB [Concomitant]
     Indication: RHEUMATOID ARTHRITIS
     Route: 048
  7. OMEPRAZOLE [Concomitant]
     Indication: GASTRIC ULCER
     Route: 048
  8. TAMSULOSIN HCL [Concomitant]
     Indication: PROSTATE CANCER
     Route: 048
  9. PRENATAL VITAMINS [Concomitant]
     Indication: VITAMIN SUPPLEMENTATION
     Route: 048
  10. CALCIUM GLUCONATE [Concomitant]
     Indication: MINERAL SUPPLEMENTATION
     Route: 048
  11. ASPIRIN [Concomitant]
     Indication: DRUG USE FOR UNKNOWN INDICATION
     Route: 048

REACTIONS (5)
  - FALL [None]
  - HAEMATOMA [None]
  - HAEMORRHAGE [None]
  - RASH [None]
  - URTICARIA [None]
